FAERS Safety Report 11687588 (Version 1)
Quarter: 2015Q4

REPORT INFORMATION
  Report Type: Spontaneous
  Country: US (occurrence: US)
  Receive Date: 20151030
  Receipt Date: 20151030
  Transmission Date: 20160304
  Serious: Yes (Hospitalization)
  Sender: FDA-Public Use
  Company Number: PHHY2015US138335

PATIENT
  Age: 17 Year
  Sex: Female

DRUGS (1)
  1. DOXYCYCLINE. [Suspect]
     Active Substance: DOXYCYCLINE
     Indication: ACNE
     Dosage: 100 MG, BID
     Route: 065

REACTIONS (4)
  - Hepato-lenticular degeneration [Unknown]
  - Acute hepatic failure [Recovered/Resolved]
  - Chronic kidney disease [Unknown]
  - Coombs negative haemolytic anaemia [Unknown]
